FAERS Safety Report 8799337 (Version 2)
Quarter: 2012Q4

REPORT INFORMATION
  Report Type: 
  Country: CA (occurrence: CA)
  Receive Date: 20120920
  Receipt Date: 20120925
  Transmission Date: 20130627
  Serious: Yes (Hospitalization, Other)
  Sender: FDA-Public Use
  Company Number: CA-BAXTER-2012BAX016971

PATIENT
  Age: 57 Year
  Sex: Female

DRUGS (8)
  1. DIANEAL PD4 SOLUTION WITH 1.5% DEXTROSE AND 2.5 MEQ/L CALCIUM [Suspect]
     Indication: KIDNEY FAILURE
     Route: 033
  2. DIANEAL PD4 SOLUTION WITH 1.5% DEXTROSE AND 2.5 MEQ/L CALCIUM [Suspect]
     Indication: AUTOMATED PERITONEAL DIALYSIS
  3. DIANEAL PD 101 SOLUTION WITH 0.5% DEXTROSE [Suspect]
     Indication: KIDNEY FAILURE
     Route: 033
  4. DIANEAL PD 101 SOLUTION WITH 0.5% DEXTROSE [Suspect]
     Indication: AUTOMATED PERITONEAL DIALYSIS
  5. DIANEAL PD4 SOLUTION WITH 4.25% DEXTROSE AND 2.5 MEQ/L CALCIUM [Suspect]
     Indication: AUTOMATED PERITONEAL DIALYSIS
     Route: 033
  6. EXTRANEAL [Suspect]
     Indication: KIDNEY FAILURE
     Route: 033
  7. EXTRANEAL [Suspect]
     Indication: AUTOMATED PERITONEAL DIALYSIS
  8. VANCOMYCIN [Concomitant]
     Indication: PRODUCT USED FOR UNKNOWN INDICATION
     Route: 033
     Dates: start: 20120624, end: 20120624

REACTIONS (8)
  - Cardiac disorder [Unknown]
  - Pathogen resistance [Unknown]
  - Dyspnoea [Not Recovered/Not Resolved]
  - Peritonitis bacterial [Recovered/Resolved with Sequelae]
  - Lung disorder [Not Recovered/Not Resolved]
  - Decreased appetite [Unknown]
  - Asthenia [Unknown]
  - Peritoneal dialysis complication [Unknown]
